FAERS Safety Report 9490751 (Version 1)
Quarter: 2013Q3

REPORT INFORMATION
  Report Type: Spontaneous
  Country: US (occurrence: US)
  Receive Date: 20130830
  Receipt Date: 20130830
  Transmission Date: 20140515
  Serious: No
  Sender: FDA-Public Use
  Company Number: US-BAYER-2013-104787

PATIENT
  Sex: Male

DRUGS (2)
  1. ALEVE CAPLET [Suspect]
     Indication: POST CONCUSSION SYNDROME
     Dosage: UNK UNK, UNK
     Route: 048
  2. ADVIL [Concomitant]

REACTIONS (2)
  - Night sweats [None]
  - Off label use [None]
